FAERS Safety Report 17273043 (Version 3)
Quarter: 2020Q1

REPORT INFORMATION
  Report Type: Report from Study
  Country: CA (occurrence: CA)
  Receive Date: 20200115
  Receipt Date: 20200219
  Transmission Date: 20200409
  Serious: Yes (Other)
  Sender: FDA-Public Use
  Company Number: CA-JNJFOC-20190736552

PATIENT
  Age: 19 Year
  Sex: Female
  Weight: 79.6 kg

DRUGS (3)
  1. STELARA [Suspect]
     Active Substance: USTEKINUMAB
     Dosage: STRENGTH = 90 MG
     Route: 058
  2. STELARA [Suspect]
     Active Substance: USTEKINUMAB
     Indication: CROHN^S DISEASE
     Route: 058
     Dates: start: 20160425
  3. STELARA [Suspect]
     Active Substance: USTEKINUMAB
     Route: 058
     Dates: start: 20180720

REACTIONS (12)
  - Fatigue [Unknown]
  - Malaise [Unknown]
  - Menorrhagia [Not Recovered/Not Resolved]
  - Urinary tract infection [Recovered/Resolved]
  - Influenza [Unknown]
  - Chest pain [Recovered/Resolved]
  - Cervix disorder [Unknown]
  - Nausea [Recovered/Resolved]
  - Crohn^s disease [Unknown]
  - Complication of device insertion [Unknown]
  - Vomiting [Recovered/Resolved]
  - Migraine [Recovered/Resolved]

NARRATIVE: CASE EVENT DATE: 20190710
